FAERS Safety Report 16164952 (Version 2)
Quarter: 2019Q2

REPORT INFORMATION
  Report Type: Spontaneous
  Country: US (occurrence: US)
  Receive Date: 20190405
  Receipt Date: 20190517
  Transmission Date: 20190711
  Serious: No
  Sender: FDA-Public Use
  Company Number: US-ASTRAZENECA-2018SF41284

PATIENT
  Sex: Female
  Weight: 83.5 kg

DRUGS (1)
  1. BYDUREON [Suspect]
     Active Substance: EXENATIDE
     Indication: DIABETES MELLITUS
     Route: 058
     Dates: start: 2018

REACTIONS (7)
  - Incorrect dose administered [Unknown]
  - Device issue [Unknown]
  - Intentional device misuse [Recovered/Resolved]
  - Malaise [Recovered/Resolved]
  - Wrong technique in product usage process [Recovered/Resolved]
  - Intentional product misuse [Unknown]
  - Wrong technique in device usage process [Recovered/Resolved]
